FAERS Safety Report 23712180 (Version 1)
Quarter: 2024Q2

REPORT INFORMATION
  Report Type: Report from Study
  Country: NL (occurrence: NL)
  Receive Date: 20240405
  Receipt Date: 20240405
  Transmission Date: 20240716
  Serious: Yes (Hospitalization)
  Sender: FDA-Public Use
  Company Number: NL-ABBVIE-5511207

PATIENT
  Sex: Female

DRUGS (6)
  1. METHOTREXATE [Suspect]
     Active Substance: METHOTREXATE
     Indication: Product used for unknown indication
     Route: 065
     Dates: start: 2020
  2. THIOGUANINE ANHYDROUS [Concomitant]
     Active Substance: THIOGUANINE ANHYDROUS
     Indication: Product used for unknown indication
     Route: 065
     Dates: start: 202209
  3. STELARA [Concomitant]
     Active Substance: USTEKINUMAB
     Indication: Product used for unknown indication
     Route: 065
     Dates: start: 2022
  4. ADALIMUMAB [Concomitant]
     Active Substance: ADALIMUMAB\ISOPROPYL ALCOHOL
     Indication: Crohn^s disease
     Route: 058
     Dates: start: 2019
  5. USTEKINUMAB [Concomitant]
     Active Substance: USTEKINUMAB
     Indication: Crohn^s disease
     Route: 065
     Dates: start: 2019, end: 2019
  6. USTEKINUMAB [Concomitant]
     Active Substance: USTEKINUMAB
     Indication: Crohn^s disease
     Route: 065
     Dates: start: 2022

REACTIONS (10)
  - Ileocaecal resection [Recovered/Resolved]
  - Stoma creation [Recovered/Resolved]
  - Hypophagia [Not Recovered/Not Resolved]
  - Post-traumatic stress disorder [Unknown]
  - Crohn^s disease [Not Recovered/Not Resolved]
  - Pain [Unknown]
  - Depression [Unknown]
  - Heavy menstrual bleeding [Unknown]
  - Loss of personal independence in daily activities [Unknown]
  - Faecal calprotectin increased [Unknown]
